FAERS Safety Report 12213810 (Version 4)
Quarter: 2016Q3

REPORT INFORMATION
  Report Type: Spontaneous
  Country: US (occurrence: US)
  Receive Date: 20160328
  Receipt Date: 20160711
  Transmission Date: 20161109
  Serious: No
  Sender: FDA-Public Use
  Company Number: US-GLAXOSMITHKLINE-US2016041973

PATIENT
  Sex: Male

DRUGS (1)
  1. NICORETTE [Suspect]
     Active Substance: NICOTINE
     Indication: SMOKING CESSATION THERAPY
     Dosage: 10 PIECES IN 5 DAYS,UNK

REACTIONS (4)
  - Toothache [Unknown]
  - Abdominal discomfort [Unknown]
  - Inappropriate schedule of drug administration [Unknown]
  - Hiccups [Unknown]
